FAERS Safety Report 23396866 (Version 1)
Quarter: 2024Q1

REPORT INFORMATION
  Report Type: Report from Study
  Country: US (occurrence: US)
  Receive Date: 20240112
  Receipt Date: 20240112
  Transmission Date: 20240410
  Serious: Yes (Death, Hospitalization)
  Sender: FDA-Public Use
  Company Number: US-JNJFOC-20240124892

PATIENT
  Age: 3 Year
  Sex: Male

DRUGS (3)
  1. ACETAMINOPHEN [Suspect]
     Active Substance: ACETAMINOPHEN
     Indication: Product used for unknown indication
     Dosage: ALTERNATING DOSES OF IBUPROFEN AND PARACETAMOL EVERY 4 H FOR 5 D
     Route: 048
  2. ACETAMINOPHEN\CHLORPHENIRAMINE MALEATE\DEXTROMETHORPHAN\PHENYLEPHRINE [Suspect]
     Active Substance: ACETAMINOPHEN\CHLORPHENIRAMINE MALEATE\DEXTROMETHORPHAN\PHENYLEPHRINE HYDROCHLORIDE
     Indication: Product used for unknown indication
     Route: 065
  3. IBUPROFEN [Suspect]
     Active Substance: IBUPROFEN
     Indication: Product used for unknown indication
     Route: 065

REACTIONS (8)
  - Hepatic failure [Fatal]
  - Pneumonia [Fatal]
  - Sepsis [Fatal]
  - Encephalopathy [Fatal]
  - Toxicity to various agents [Fatal]
  - Medication error [Fatal]
  - Coagulopathy [Fatal]
  - Hypotension [Fatal]
